FAERS Safety Report 16599277 (Version 2)
Quarter: 2019Q3

REPORT INFORMATION
  Report Type: Report from Study
  Country: US (occurrence: US)
  Receive Date: 20190719
  Receipt Date: 20190822
  Transmission Date: 20191004
  Serious: Yes (Hospitalization)
  Sender: FDA-Public Use
  Company Number: US-ELI_LILLY_AND_COMPANY-US201907006285

PATIENT
  Age: 56 Year
  Sex: Male

DRUGS (4)
  1. OLANZAPINE PAMOATE [Suspect]
     Active Substance: OLANZAPINE PAMOATE
     Indication: SCHIZOPHRENIA
     Dosage: 210 MG, Q2W
     Route: 030
     Dates: start: 20111216, end: 20111216
  2. OLANZAPINE PAMOATE [Suspect]
     Active Substance: OLANZAPINE PAMOATE
     Dosage: 300 MG, Q2W
     Route: 030
     Dates: start: 20120725, end: 20130318
  3. OLANZAPINE PAMOATE [Suspect]
     Active Substance: OLANZAPINE PAMOATE
     Dosage: 405 MG, Q2W
     Route: 030
     Dates: start: 20130404
  4. OLANZAPINE PAMOATE [Suspect]
     Active Substance: OLANZAPINE PAMOATE
     Dosage: 405 MG, Q2W
     Route: 030
     Dates: start: 20111231, end: 20120712

REACTIONS (5)
  - Somnolence [Recovered/Resolved]
  - Gait inability [Recovered/Resolved]
  - Post-injection delirium sedation syndrome [Recovered/Resolved]
  - Dizziness [Recovered/Resolved]
  - Sedation [Recovered/Resolved]

NARRATIVE: CASE EVENT DATE: 20190708
